FAERS Safety Report 16190040 (Version 1)
Quarter: 2019Q2

REPORT INFORMATION
  Report Type: Spontaneous
  Country: US (occurrence: US)
  Receive Date: 20190308
  Receipt Date: 20190308
  Transmission Date: 20190711
  Serious: No
  Sender: FDA-Public Use
  Company Number: None

PATIENT
  Sex: Female

DRUGS (1)
  1. PULMOZYME [Suspect]
     Active Substance: DORNASE ALFA
     Indication: CYSTIC FIBROSIS
     Route: 055
     Dates: start: 20110511

REACTIONS (8)
  - Viral infection [None]
  - Cough [None]
  - Pyrexia [None]
  - Chills [None]
  - Pain [None]
  - Rash [None]
  - Dyspnoea [None]
  - Diarrhoea [None]
